FAERS Safety Report 17812126 (Version 1)
Quarter: 2020Q2

REPORT INFORMATION
  Report Type: Spontaneous
  Country: US (occurrence: US)
  Receive Date: 20200521
  Receipt Date: 20200521
  Transmission Date: 20200714
  Serious: Yes (Life-Threatening, Hospitalization, Other)
  Sender: FDA-Public Use
  Company Number: US-PFIZER INC-2020200275

PATIENT
  Age: 69 Year
  Sex: Male

DRUGS (3)
  1. SODIUM BICARBONATE. [Suspect]
     Active Substance: SODIUM BICARBONATE
     Indication: HAEMODIALYSIS
     Dosage: BICARBONATE DIALYSIS BATH
  2. SODIUM BICARBONATE. [Suspect]
     Active Substance: SODIUM BICARBONATE
     Indication: LACTIC ACIDOSIS
     Dosage: IV DRIP
     Route: 041
  3. SODIUM POLYSTYRENE SULPHONATE [Concomitant]
     Active Substance: SODIUM POLYSTYRENE SULFONATE
     Dosage: UNK
     Route: 048

REACTIONS (5)
  - Cardiac failure [Recovered/Resolved]
  - Blood pressure decreased [Recovered/Resolved]
  - Acidosis [Recovered/Resolved]
  - Heart rate decreased [Recovered/Resolved]
  - Haemodynamic instability [Recovered/Resolved]
